FAERS Safety Report 9640025 (Version 1)
Quarter: 2013Q4

REPORT INFORMATION
  Report Type: Spontaneous
  Country: US (occurrence: None)
  Receive Date: 20131022
  Receipt Date: 20131022
  Transmission Date: 20140711
  Serious: Yes (Death)
  Sender: FDA-Public Use
  Company Number: None

PATIENT
  Age: 76 Year
  Sex: Male

DRUGS (1)
  1. ZYTIGA [Suspect]
     Indication: PROSTATE CANCER
     Dosage: 100 MG (4 TABS) DAILY ORAL
     Route: 048
     Dates: start: 20130524, end: 20130917

REACTIONS (1)
  - Death [None]
